FAERS Safety Report 6085463-0 (Version None)
Quarter: 2009Q1

REPORT INFORMATION
  Report Type: 
  Country: None (occurrence: None)
  Receive Date: 20090220
  Receipt Date: 20090211
  Transmission Date: 20090719
  Serious: Yes (Other)
  Sender: FDA-Public Use
  Company Number: US-JNJFOC-20090203210

PATIENT
  Age: 31 Year
  Sex: Female

DRUGS (8)
  1. TOPAMAX [Suspect]
  2. TOPAMAX [Suspect]
     Indication: DEPRESSION
  3. CARBATROL [Suspect]
  4. CARBATROL [Suspect]
     Indication: DRUG USE FOR UNKNOWN INDICATION
  5. SYNTHROID [Concomitant]
     Indication: HYPOTHYROIDISM
  6. LORATADINE [Concomitant]
     Indication: MULTIPLE ALLERGIES
  7. EFFEXOR XR [Concomitant]
     Indication: DEPRESSION
  8. ZOLOFT [Concomitant]
     Indication: DEPRESSION

REACTIONS (3)
  - DRUG EXPOSURE DURING PREGNANCY [None]
  - INTRA-UTERINE DEATH [None]
  - PLACENTAL DISORDER [None]
